FAERS Safety Report 8565412-3 (Version None)
Quarter: 2012Q3

REPORT INFORMATION
  Report Type: 
  Country: None (occurrence: None)
  Receive Date: 20120803
  Receipt Date: 20120727
  Transmission Date: 20120928
  Serious: Yes (Other)
  Sender: FDA-Public Use
  Company Number: BR-PFIZER INC-2012183981

PATIENT
  Age: 81 Year
  Sex: Female

DRUGS (1)
  1. XALATAN [Suspect]
     Indication: INTRAOCULAR PRESSURE INCREASED
     Dosage: UNK
     Route: 047
     Dates: start: 20080619

REACTIONS (7)
  - EYE PAIN [None]
  - VESSEL PERFORATION [None]
  - DRUG INEFFECTIVE [None]
  - HAEMORRHAGE [None]
  - OCULAR HYPERAEMIA [None]
  - EYE IRRITATION [None]
  - ABDOMINAL DISCOMFORT [None]
